FAERS Safety Report 9641455 (Version 2)
Quarter: 2013Q4

REPORT INFORMATION
  Report Type: Report from Study
  Country: US (occurrence: US)
  Receive Date: 20131023
  Receipt Date: 20131023
  Transmission Date: 20140711
  Serious: No
  Sender: FDA-Public Use
  Company Number: US-ABBVIE-12P-163-1017865-00

PATIENT
  Age: 38 Year
  Sex: Female
  Weight: 56.3 kg

DRUGS (8)
  1. LUPRON DEPOT 3.75MG [Suspect]
     Indication: ENDOMETRIOSIS
     Route: 030
     Dates: start: 20121029
  2. LUPRON DEPOT 3.75MG [Suspect]
     Indication: UTERINE LEIOMYOMA
  3. LUPRON DEPOT 11.25MG [Suspect]
     Indication: ENDOMETRIOSIS
     Route: 030
     Dates: start: 20130617
  4. LUPRON DEPOT 11.25MG [Suspect]
     Indication: UTERINE LEIOMYOMA
  5. SYNTHROID [Concomitant]
     Indication: PRODUCT USED FOR UNKNOWN INDICATION
  6. T3 [Concomitant]
     Indication: PRODUCT USED FOR UNKNOWN INDICATION
  7. VITAMIN D NOS [Concomitant]
     Indication: PRODUCT USED FOR UNKNOWN INDICATION
  8. PRENATAL VITAMINS [Concomitant]
     Indication: PRODUCT USED FOR UNKNOWN INDICATION

REACTIONS (5)
  - Vaginal haemorrhage [Not Recovered/Not Resolved]
  - Hot flush [Not Recovered/Not Resolved]
  - Mood swings [Recovering/Resolving]
  - Pruritus [Recovering/Resolving]
  - Uterine inflammation [Not Recovered/Not Resolved]
